FAERS Safety Report 8184312-4 (Version None)
Quarter: 2012Q1

REPORT INFORMATION
  Report Type: 
  Country: None (occurrence: None)
  Receive Date: 20120305
  Receipt Date: 20120228
  Transmission Date: 20120608
  Serious: Yes (Hospitalization)
  Sender: FDA-Public Use
  Company Number: US-ABBOTT-11P-163-0884616-00

PATIENT
  Sex: Female

DRUGS (16)
  1. SIMVASTATIN [Suspect]
     Indication: BLOOD CHOLESTEROL
     Route: 065
     Dates: start: 20090227, end: 20090828
  2. FERGON [Suspect]
     Indication: IRON DEFICIENCY
     Route: 048
     Dates: start: 20090227, end: 20090828
  3. ACTONEL [Concomitant]
     Indication: OSTEOPOROSIS
     Route: 065
     Dates: start: 20060523
  4. HYPROMELLOSE [Concomitant]
     Indication: DRY EYE
     Dosage: 1 GTT, 4 IN 1 DAY
     Route: 047
     Dates: start: 20090309
  5. PIOGLITAZONE HYDROCHLORIDE [Suspect]
     Indication: DIABETES MELLITUS
     Route: 048
     Dates: start: 20070604
  6. CIPRO [Concomitant]
     Indication: PRODUCT USED FOR UNKNOWN INDICATION
     Dosage: 1000 MG / 10 ML
     Route: 065
  7. COLACE [Suspect]
     Indication: CONSTIPATION
     Route: 065
     Dates: start: 20090302, end: 20090828
  8. RANITIDINE [Suspect]
     Indication: ULCER
     Route: 065
     Dates: end: 20090828
  9. LORTAB [Suspect]
     Indication: ANALGESIC THERAPY
     Dosage: 5MG/500MG EVERY 6 HOURS, AS NEEDED
     Route: 065
     Dates: start: 20090302, end: 20090828
  10. ZOFRAN [Suspect]
     Indication: NAUSEA
     Dosage: EVERY 6 HOURS, AS NEEDED
     Route: 048
     Dates: end: 20090828
  11. ASPIRIN [Concomitant]
     Indication: ARTHRALGIA
  12. SUNITINIB MALATE [Suspect]
     Indication: RENAL CANCER
     Route: 065
     Dates: start: 20090601, end: 20090828
  13. ASPIRIN [Concomitant]
     Indication: HYPERTENSION
  14. DUTOGLIPTIN [Suspect]
     Indication: TYPE 2 DIABETES MELLITUS
     Dosage: INVESTIGATIONAL DRUG
     Route: 065
     Dates: start: 20090316, end: 20090406
  15. MEGACE [Suspect]
     Indication: DECREASED APPETITE
     Dosage: DAILY
     Route: 048
  16. ASPIRIN [Concomitant]
     Indication: PAIN IN EXTREMITY
     Route: 065
     Dates: end: 20090828

REACTIONS (6)
  - FATIGUE [None]
  - HEADACHE [None]
  - COGNITIVE DISORDER [None]
  - VOMITING [None]
  - ABDOMINAL PAIN [None]
  - MALAISE [None]
